FAERS Safety Report 21230807 (Version 3)
Quarter: 2025Q3

REPORT INFORMATION
  Report Type: Spontaneous
  Country: EU (occurrence: EU)
  Receive Date: 20220819
  Receipt Date: 20250805
  Transmission Date: 20251020
  Serious: Yes (Hospitalization, Other)
  Sender: AUROBINDO
  Company Number: EU-MLMSERVICE-20220802-3706402-1

PATIENT
  Age: 2 Year
  Sex: Male

DRUGS (4)
  1. IBUPROFEN [Suspect]
     Active Substance: IBUPROFEN
     Indication: Pain in extremity
     Route: 065
  2. VITAMIN C [Concomitant]
     Active Substance: ASCORBIC ACID
     Indication: Vitamin C deficiency
     Dosage: 125 MILLIGRAM, TWO TIMES A DAY (FOR 10 DAYS)
     Route: 065
  3. VITAMIN C [Concomitant]
     Active Substance: ASCORBIC ACID
     Dosage: 125 MILLIGRAM, TWO TIMES A DAY
     Route: 065
  4. ACYCLOVIR [Concomitant]
     Active Substance: ACYCLOVIR
     Indication: Antiviral treatment
     Route: 065

REACTIONS (4)
  - Tubulointerstitial nephritis [Recovered/Resolved]
  - Renal failure [Recovered/Resolved]
  - Drug abuse [Unknown]
  - Drug ineffective [Unknown]
